FAERS Safety Report 15276520 (Version 2)
Quarter: 2018Q3

REPORT INFORMATION
  Report Type: Report from Study
  Country: US (occurrence: US)
  Receive Date: 20180814
  Receipt Date: 20180911
  Transmission Date: 20181010
  Serious: Yes (Hospitalization, Other)
  Sender: FDA-Public Use
  Company Number: US-IPSEN BIOPHARMACEUTICALS, INC.-2018-10649

PATIENT
  Age: 15 Year
  Sex: Male
  Weight: 47.2 kg

DRUGS (2)
  1. DYSPORT [Suspect]
     Active Substance: ABOBOTULINUMTOXINA
     Indication: MUSCLE SPASTICITY
     Dosage: NOT REPORTED
     Route: 065
     Dates: start: 20180302, end: 20180302
  2. DYSPORT [Suspect]
     Active Substance: ABOBOTULINUMTOXINA
     Dosage: 1000 IU
     Route: 030
     Dates: start: 20180622, end: 20180622

REACTIONS (10)
  - Decubitus ulcer [Unknown]
  - Bladder dysfunction [Unknown]
  - Upper-airway cough syndrome [Unknown]
  - CSF shunt operation [Unknown]
  - Epiglottitis obstructive [Unknown]
  - Saliva altered [Unknown]
  - Constipation [Unknown]
  - Injury [Unknown]
  - Pneumonia aspiration [Not Recovered/Not Resolved]
  - Seborrhoeic dermatitis [Unknown]

NARRATIVE: CASE EVENT DATE: 2018
